FAERS Safety Report 4407631-3 (Version None)
Quarter: 2004Q3

REPORT INFORMATION
  Report Type: 
  Country: None (occurrence: None)
  Receive Date: 20040721
  Receipt Date: 20040706
  Transmission Date: 20050211
  Serious: Yes (Death, Hospitalization)
  Sender: FDA-Public Use
  Company Number: JP_040603337

PATIENT
  Age: 62 Year
  Sex: Male
  Weight: 58 kg

DRUGS (3)
  1. VANCOMYCIN [Suspect]
     Indication: POSTOPERATIVE INFECTION
     Dosage: 500 MG/1 DAY
     Dates: start: 20040220, end: 20040229
  2. VANCOMYCIN [Suspect]
     Indication: STAPHYLOCOCCAL INFECTION
     Dosage: 500 MG/1 DAY
     Dates: start: 20040220, end: 20040229
  3. VICCILLIN FOR INJECTION (AMPICILLIN SODIUM) [Concomitant]

REACTIONS (4)
  - ANAEMIA [None]
  - GENERAL PHYSICAL HEALTH DETERIORATION [None]
  - LINEAR IGA DISEASE [None]
  - RENAL IMPAIRMENT [None]
